FAERS Safety Report 5400444-5 (Version None)
Quarter: 2007Q3

REPORT INFORMATION
  Report Type: 
  Country: None (occurrence: None)
  Receive Date: 20070730
  Receipt Date: 20070720
  Transmission Date: 20080115
  Serious: Yes (Life-Threatening, Hospitalization, Disabling, Other)
  Sender: FDA-Public Use
  Company Number: B0481031A

PATIENT
  Age: 67 Year
  Sex: Female
  Weight: 75.8 kg

DRUGS (4)
  1. TOPOTECAN [Suspect]
     Indication: DRUG USE FOR UNKNOWN INDICATION
     Route: 042
     Dates: start: 20070430, end: 20070521
  2. ASPIRIN [Concomitant]
     Route: 048
  3. HUMALOG [Concomitant]
  4. METOCLOPRAMIDE [Concomitant]
     Route: 040

REACTIONS (3)
  - BRONCHOSPASM [None]
  - HYPERTENSION [None]
  - HYPOXIA [None]
